FAERS Safety Report 14577888 (Version 2)
Quarter: 2018Q1

REPORT INFORMATION
  Report Type: Spontaneous
  Country: CA (occurrence: CA)
  Receive Date: 20180227
  Receipt Date: 20180313
  Transmission Date: 20180509
  Serious: No
  Sender: FDA-Public Use
  Company Number: CA-CELLTRION INC.-2018CA018144

PATIENT

DRUGS (5)
  1. INFLECTRA [Suspect]
     Active Substance: INFLIXIMAB-DYYB
     Dosage: 500 MG CYCLIC THEN EVERY 8 WEEKS
     Route: 042
     Dates: start: 20180111
  2. BENADRYL [Concomitant]
     Active Substance: DIPHENHYDRAMINE HYDROCHLORIDE
     Dosage: 50 MG
     Route: 048
  3. ACETAMINOPHEN. [Concomitant]
     Active Substance: ACETAMINOPHEN
     Dosage: 975 MG
     Route: 048
  4. INFLECTRA [Suspect]
     Active Substance: INFLIXIMAB-DYYB
     Indication: CROHN^S DISEASE
     Dosage: 426 MG EVERY 0, 2, 6 WEEKS, THEN EVERY 8WEEKS
     Route: 042
     Dates: start: 20170811
  5. CEPHALEX                           /00145501/ [Concomitant]
     Dosage: 500 MG,4 TIMES DAILY
     Route: 048

REACTIONS (1)
  - No adverse event [Recovering/Resolving]
